FAERS Safety Report 6828733-8 (Version None)
Quarter: 2010Q3

REPORT INFORMATION
  Report Type: 
  Country: None (occurrence: None)
  Receive Date: 20100709
  Receipt Date: 20070216
  Transmission Date: 20110219
  Serious: No
  Sender: FDA-Public Use
  Company Number: US-PFIZER INC-2007012422

PATIENT
  Sex: Female
  Weight: 74.84 kg

DRUGS (3)
  1. CHANTIX [Suspect]
     Indication: SMOKING CESSATION THERAPY
     Dates: start: 20070101
  2. LAMICTAL [Concomitant]
     Indication: CONVULSION
  3. REQUIP [Concomitant]
     Indication: RESTLESS LEGS SYNDROME

REACTIONS (2)
  - NASOPHARYNGITIS [None]
  - NAUSEA [None]
